FAERS Safety Report 24218312 (Version 1)
Quarter: 2024Q3

REPORT INFORMATION
  Report Type: Spontaneous
  Country: PT (occurrence: PT)
  Receive Date: 20240816
  Receipt Date: 20240816
  Transmission Date: 20241017
  Serious: Yes (Other)
  Sender: GUERBET
  Company Number: PT-GUERBET / MARTINS + FERNANDES-PT-20240016

PATIENT
  Age: 63 Year
  Sex: Female

DRUGS (1)
  1. IOVERSOL [Suspect]
     Active Substance: IOVERSOL
     Indication: Catheterisation cardiac

REACTIONS (1)
  - Fixed eruption [Recovered/Resolved]
